FAERS Safety Report 7626883-X (Version None)
Quarter: 2011Q3

REPORT INFORMATION
  Report Type: 
  Country: None (occurrence: None)
  Receive Date: 20110701
  Receipt Date: 20100519
  Transmission Date: 20111222
  Serious: Yes (Life-Threatening, Hospitalization)
  Sender: FDA-Public Use
  Company Number: 7004592

PATIENT
  Age: 37 Year
  Sex: Female

DRUGS (4)
  1. CYMBALTA [Concomitant]
  2. REBIF [Suspect]
     Indication: MULTIPLE SCLEROSIS
     Dosage: 22 MCG, SUBCUTANEOUS, 44 MCG, SUBCUTANEOUS
     Route: 058
     Dates: start: 20100201, end: 20100507
  3. REBIF [Suspect]
     Indication: MULTIPLE SCLEROSIS
     Dosage: 22 MCG, SUBCUTANEOUS, 44 MCG, SUBCUTANEOUS
     Route: 058
     Dates: start: 20091216, end: 20100201
  4. NUVIGIL [Concomitant]

REACTIONS (6)
  - HAND FRACTURE [None]
  - FALL [None]
  - TONGUE DISCOLOURATION [None]
  - MULTIPLE SCLEROSIS RELAPSE [None]
  - ANAPHYLACTIC REACTION [None]
  - ASTHENIA [None]
